FAERS Safety Report 18343307 (Version 1)
Quarter: 2020Q4

REPORT INFORMATION
  Report Type: Spontaneous
  Country: FR (occurrence: FR)
  Receive Date: 20201005
  Receipt Date: 20201005
  Transmission Date: 20210113
  Serious: Yes (Hospitalization)
  Sender: FDA-Public Use
  Company Number: NVSC2020FR264295

PATIENT
  Age: 35 Year
  Sex: Female

DRUGS (5)
  1. FORTUM [Concomitant]
     Active Substance: CEFTAZIDIME
     Indication: SEPTIC SHOCK
     Route: 042
     Dates: start: 20180928
  2. AMIKLIN [Concomitant]
     Active Substance: AMIKACIN SULFATE
     Indication: SEPTIC SHOCK
     Route: 042
     Dates: start: 20180928
  3. TAZOCILLINE [Concomitant]
     Active Substance: PIPERACILLIN SODIUM\TAZOBACTAM SODIUM
     Indication: COUGH
     Route: 042
     Dates: start: 20180929
  4. BACTRIM [Concomitant]
     Active Substance: SULFAMETHOXAZOLE\TRIMETHOPRIM
     Indication: SEPTIC SHOCK
     Route: 042
     Dates: start: 20180928
  5. CEFTRIAXONE SODIUM. [Suspect]
     Active Substance: CEFTRIAXONE SODIUM
     Indication: SEPTIC SHOCK
     Dosage: UNK
     Route: 042
     Dates: start: 20180928

REACTIONS (1)
  - Fixed eruption [Recovered/Resolved]

NARRATIVE: CASE EVENT DATE: 20180930
